FAERS Safety Report 9421796 (Version 3)
Quarter: 2021Q1

REPORT INFORMATION
  Report Type: Report from Study
  Country: TW (occurrence: TW)
  Receive Date: 20130726
  Receipt Date: 20210207
  Transmission Date: 20210420
  Serious: Yes (Hospitalization)
  Sender: FDA-Public Use
  Company Number: TW-SHIRE-ALL1-2013-05021

PATIENT
  Age: 28 Year
  Sex: Male
  Weight: 42.3 kg

DRUGS (14)
  1. IDURSULFASE [Suspect]
     Active Substance: IDURSULFASE
     Dosage: 0.5 MILLIGRAM/KILOGRAM, 1/WEEK
     Route: 042
     Dates: start: 20170612
  2. MEPTIN [Concomitant]
     Active Substance: PROCATEROL HYDROCHLORIDE
     Indication: RESPIRATORY DISORDER
     Dosage: 25 MG, 1X/DAY:QD (HS)
     Route: 048
     Dates: start: 20090420
  3. IDURSULFASE [Suspect]
     Active Substance: IDURSULFASE
     Dosage: UNK
     Route: 065
     Dates: start: 20130114
  4. ALLERMIN [Concomitant]
     Active Substance: CHLORPHENIRAMINE MALEATE
     Indication: PREMEDICATION
     Dosage: 5 MG, UNKNOWN
     Route: 030
     Dates: start: 20090716
  5. NEOMYCIN SULFATE. [Concomitant]
     Active Substance: NEOMYCIN SULFATE
     Indication: SLEEP DISORDER
     Dosage: 1 DF, 2X/DAY:BID
     Route: 048
     Dates: start: 20091202
  6. BISOLVON [Concomitant]
     Active Substance: BROMHEXINE HYDROCHLORIDE
     Indication: RESPIRATORY DISORDER
     Dosage: 1 DF, 4X/DAY:QID
     Route: 048
     Dates: start: 20090702
  7. SALBUTAMOL [Concomitant]
     Active Substance: ALBUTEROL
     Indication: RESPIRATORY DISORDER
     Dosage: 1 MG, AS REQ^D
     Route: 048
     Dates: start: 20090716
  8. IDURSULFASE [Suspect]
     Active Substance: IDURSULFASE
     Dosage: 0.5 MILLIGRAM/KILOGRAM, 1/WEEK
     Route: 042
     Dates: start: 20181119
  9. IDURSULFASE [Suspect]
     Active Substance: IDURSULFASE
     Dosage: 0.5 MILLIGRAM/KILOGRAM, 1/WEEK
     Route: 042
     Dates: start: 20190624, end: 20200721
  10. CYPROHEPTADINE HCL [Concomitant]
     Active Substance: CYPROHEPTADINE HYDROCHLORIDE
     Indication: SLEEP DISORDER
     Dosage: 4 MG, 4X/DAY:QID
     Route: 048
     Dates: start: 20100211
  11. FUROSEMIDE. [Concomitant]
     Active Substance: FUROSEMIDE
     Indication: CARDIOVASCULAR DISORDER
     Dosage: 10 MG, 2X/DAY:BID
     Route: 048
     Dates: start: 20090409
  12. IDURSULFASE [Suspect]
     Active Substance: IDURSULFASE
     Indication: MUCOPOLYSACCHARIDOSIS II
     Dosage: 24 MG, UNKNOWN
     Route: 041
     Dates: start: 20090716
  13. IDURSULFASE [Suspect]
     Active Substance: IDURSULFASE
     Dosage: UNK
     Route: 065
     Dates: start: 20140124
  14. SPIRONOLACTONE. [Concomitant]
     Active Substance: SPIRONOLACTONE
     Indication: CARDIOVASCULAR DISORDER
     Dosage: 12.5 MG, 2X/DAY:BID
     Route: 048
     Dates: start: 20090420

REACTIONS (2)
  - Inguinal hernia [Recovered/Resolved]
  - Carpal tunnel syndrome [Recovered/Resolved with Sequelae]

NARRATIVE: CASE EVENT DATE: 20130118
